FAERS Safety Report 6820992-0 (Version None)
Quarter: 2010Q3

REPORT INFORMATION
  Report Type: 
  Country: None (occurrence: None)
  Receive Date: 20100707
  Receipt Date: 20070820
  Transmission Date: 20110219
  Serious: Yes (Other)
  Sender: FDA-Public Use
  Company Number: US-PFIZER INC-2007068929

PATIENT
  Sex: Male
  Weight: 68 kg

DRUGS (4)
  1. ZOLOFT [Suspect]
     Indication: ANXIETY
     Dates: start: 20020101
  2. LIPITOR [Concomitant]
  3. ACETYLSALICYLIC ACID [Concomitant]
  4. CAPTOPRIL [Concomitant]

REACTIONS (3)
  - BRADYCARDIA [None]
  - EJACULATION DELAYED [None]
  - STRESS [None]
